FAERS Safety Report 21962762 (Version 2)
Quarter: 2024Q4

REPORT INFORMATION
  Report Type: Spontaneous
  Country: US (occurrence: US)
  Receive Date: 20230207
  Receipt Date: 20241112
  Transmission Date: 20250114
  Serious: No
  Sender: PFIZER
  Company Number: US-PFIZER INC-202101550638

PATIENT
  Age: 82 Year
  Sex: Male
  Weight: 131.54 kg

DRUGS (2)
  1. VYNDAMAX [Suspect]
     Active Substance: TAFAMIDIS
     Indication: Pulmonary amyloidosis
     Dosage: 61 MG, 1X/DAY IN THE EVENING
     Route: 048
     Dates: start: 20210810
  2. VYNDAMAX [Suspect]
     Active Substance: TAFAMIDIS
     Indication: Amyloidosis
     Dosage: 61 MG, 1X/DAY TAKES ONE A DAY WITH WATER IN THE EVENING
     Route: 048
     Dates: start: 202109

REACTIONS (2)
  - Drug ineffective for unapproved indication [Unknown]
  - Off label use [Unknown]

NARRATIVE: CASE EVENT DATE: 20210810
